FAERS Safety Report 16774380 (Version 2)
Quarter: 2019Q3

REPORT INFORMATION
  Report Type: Spontaneous
  Country: US (occurrence: US)
  Receive Date: 20190905
  Receipt Date: 20190917
  Transmission Date: 20191005
  Serious: No
  Sender: FDA-Public Use
  Company Number: US-009507513-1909USA001066

PATIENT
  Sex: Female

DRUGS (1)
  1. NASONEX [Suspect]
     Active Substance: MOMETASONE FUROATE
     Dosage: 2 SPRAYS A DAY/ONE SPRAY IN THE MORNING AND ONE SPRAY IN THE EVENING

REACTIONS (5)
  - Poor quality device used [Unknown]
  - Eye swelling [Unknown]
  - Hypersensitivity [Unknown]
  - Product quality issue [Unknown]
  - Nasal congestion [Unknown]
